FAERS Safety Report 9832772 (Version 1)
Quarter: 2014Q1

REPORT INFORMATION
  Report Type: Spontaneous
  Country: US (occurrence: US)
  Receive Date: 20140121
  Receipt Date: 20140121
  Transmission Date: 20141002
  Serious: Yes (Hospitalization)
  Sender: FDA-Public Use
  Company Number: US-UCBSA-108900

PATIENT
  Sex: Male

DRUGS (4)
  1. KEPPRA [Suspect]
  2. PHENOBARBITAL [Concomitant]
  3. TOPAMAX [Concomitant]
  4. ATIVAN [Concomitant]

REACTIONS (2)
  - Convulsion [Recovering/Resolving]
  - Drug ineffective [Recovered/Resolved]
